FAERS Safety Report 6114140-2 (Version None)
Quarter: 2009Q1

REPORT INFORMATION
  Report Type: 
  Country: None (occurrence: None)
  Receive Date: 20090312
  Receipt Date: 20080602
  Transmission Date: 20090719
  Serious: No
  Sender: FDA-Public Use
  Company Number: US-ABBOTT-08P-163-0446690-00

PATIENT
  Sex: Male

DRUGS (2)
  1. DEPAKOTE [Suspect]
     Indication: AGITATION
     Dosage: 1250MG DAILY, 500 AM AND 750 AT BEDTIME
     Dates: start: 20030501, end: 20080401
  2. DEPAKOTE [Suspect]
     Indication: AGGRESSION

REACTIONS (2)
  - BLOOD AMYLASE INCREASED [None]
  - LIPASE INCREASED [None]
